FAERS Safety Report 23271352 (Version 1)
Quarter: 2023Q4

REPORT INFORMATION
  Report Type: Spontaneous
  Country: US (occurrence: US)
  Receive Date: 20231207
  Receipt Date: 20231207
  Transmission Date: 20240110
  Serious: Yes (Other)
  Sender: FDA-Public Use
  Company Number: US-BRISTOL-MYERS SQUIBB COMPANY-2023-170950

PATIENT
  Age: 25 Year
  Sex: Male

DRUGS (1)
  1. SPRYCEL [Suspect]
     Active Substance: DASATINIB
     Indication: Product used for unknown indication

REACTIONS (7)
  - Constipation [Unknown]
  - Neuropathy peripheral [Unknown]
  - Fluid retention [Unknown]
  - Renal disorder [Unknown]
  - Liver disorder [Unknown]
  - Gallbladder disorder [Unknown]
  - Inflammation [Unknown]
